FAERS Safety Report 5860125-0 (Version None)
Quarter: 2008Q3

REPORT INFORMATION
  Report Type: 
  Country: None (occurrence: None)
  Receive Date: 20080827
  Receipt Date: 20080815
  Transmission Date: 20090109
  Serious: Yes (Other)
  Sender: FDA-Public Use
  Company Number: US-PFIZER INC-2008068312

PATIENT
  Sex: Male

DRUGS (1)
  1. REVATIO [Suspect]

REACTIONS (6)
  - ASTHENIA [None]
  - DYSPNOEA [None]
  - EPISTAXIS [None]
  - HAEMORRHAGE [None]
  - HYPERSENSITIVITY [None]
  - SYNCOPE [None]
